FAERS Safety Report 6229648-9 (Version None)
Quarter: 2009Q2

REPORT INFORMATION
  Report Type: 
  Country: None (occurrence: None)
  Receive Date: 20090615
  Receipt Date: 20090609
  Transmission Date: 20091009
  Serious: Yes (Hospitalization)
  Sender: FDA-Public Use
  Company Number: B0562003A

PATIENT
  Sex: Female

DRUGS (7)
  1. VALTREX [Suspect]
     Indication: HERPES ZOSTER
     Dosage: 1000MG FIVE TIMES PER DAY
     Route: 048
     Dates: start: 20090217, end: 20090223
  2. PIROLACTON [Concomitant]
     Indication: POLYURIA
     Dosage: 25MG PER DAY
     Route: 048
  3. MUCOSTA [Concomitant]
     Route: 048
  4. FAMOTIDINE [Concomitant]
     Route: 048
  5. ALLOZYM [Concomitant]
     Dosage: 50MG PER DAY
     Route: 048
  6. FUROSEMIDE [Concomitant]
     Indication: POLYURIA
     Dosage: 20MG PER DAY
     Route: 048
  7. NORVASC [Concomitant]
     Dosage: 2.5MG PER DAY
     Route: 048

REACTIONS (3)
  - ALTERED STATE OF CONSCIOUSNESS [None]
  - ANOREXIA [None]
  - DYSARTHRIA [None]
